FAERS Safety Report 8916778 (Version 1)
Quarter: 2012Q4

REPORT INFORMATION
  Report Type: Report from Study
  Country: CA (occurrence: CA)
  Receive Date: 20121120
  Receipt Date: 20121120
  Transmission Date: 20130627
  Serious: Yes (Death)
  Sender: FDA-Public Use
  Company Number: CA-ROCHE-1157374

PATIENT
  Sex: Male
  Weight: 29.51 kg

DRUGS (3)
  1. PEG-INTERFERON ALFA 2A [Suspect]
     Indication: HEPATITIS C
     Route: 058
  2. RIBAVIRIN [Suspect]
     Indication: HEPATITIS C
     Dosage: 196 tablet
     Route: 065
  3. BOCEPREVIR [Concomitant]
     Indication: HEPATITIS C
     Route: 048

REACTIONS (1)
  - Death [Fatal]
